FAERS Safety Report 10195593 (Version 2)
Quarter: 2014Q2

REPORT INFORMATION
  Report Type: Report from Study
  Country: CA (occurrence: CA)
  Receive Date: 20140527
  Receipt Date: 20140527
  Transmission Date: 20141212
  Serious: Yes (Other)
  Sender: FDA-Public Use
  Company Number: CA-ROCHE-1198516

PATIENT
  Age: 57 Year
  Sex: Female
  Weight: 72.6 kg

DRUGS (13)
  1. ACTEMRA [Suspect]
     Indication: RHEUMATOID ARTHRITIS
     Route: 042
     Dates: start: 20130227, end: 20130227
  2. RITUXAN [Suspect]
     Indication: RHEUMATOID ARTHRITIS
     Route: 042
     Dates: start: 20130710
  3. RITUXAN [Suspect]
     Route: 042
     Dates: start: 20130807
  4. BENADRYL (CANADA) [Suspect]
     Indication: PREMEDICATION
     Route: 042
     Dates: start: 20130424
  5. BENADRYL (CANADA) [Suspect]
     Route: 048
     Dates: start: 20130807
  6. ORENCIA [Suspect]
     Indication: PRODUCT USED FOR UNKNOWN INDICATION
     Route: 065
  7. HYDROCHLOROTHIAZIDE [Concomitant]
  8. AMLODIPINE [Concomitant]
  9. FOLIC ACID [Concomitant]
  10. METHOTREXATE [Concomitant]
  11. ALENDRONATE [Concomitant]
  12. PREDNISONE [Concomitant]
  13. FOSAMAX [Concomitant]

REACTIONS (10)
  - Tremor [Not Recovered/Not Resolved]
  - Infusion related reaction [Recovered/Resolved]
  - Acne [Not Recovered/Not Resolved]
  - Dizziness [Recovering/Resolving]
  - Nervousness [Unknown]
  - Infusion related reaction [Recovered/Resolved]
  - Alopecia [Unknown]
  - Inflammation [Unknown]
  - Diarrhoea [Unknown]
  - Fatigue [Not Recovered/Not Resolved]
